FAERS Safety Report 23760012 (Version 1)
Quarter: 2024Q2

REPORT INFORMATION
  Report Type: Other
  Country: GB (occurrence: None)
  Receive Date: 20240419
  Receipt Date: 20240419
  Transmission Date: 20240716
  Serious: Yes (Hospitalization)
  Sender: FDA-Public Use
  Company Number: GB-ROCHE-3422106

PATIENT
  Sex: Female

DRUGS (1)
  1. TOCILIZUMAB [Suspect]
     Active Substance: TOCILIZUMAB
     Indication: Product used for unknown indication
     Route: 058
     Dates: start: 202302

REACTIONS (5)
  - Bedridden [Unknown]
  - Ill-defined disorder [Unknown]
  - Malaise [Unknown]
  - Cough [Unknown]
  - Arthropathy [Unknown]
